FAERS Safety Report 15436776 (Version 2)
Quarter: 2018Q4

REPORT INFORMATION
  Report Type: Report from Study
  Country: US (occurrence: US)
  Receive Date: 20180927
  Receipt Date: 20181120
  Transmission Date: 20190204
  Serious: Yes (Hospitalization)
  Sender: FDA-Public Use
  Company Number: US-ACTELION-A-NJ2018-179181

PATIENT
  Age: 66 Year
  Sex: Female
  Weight: 78.46 kg

DRUGS (10)
  1. DILTIAZEM. [Concomitant]
     Active Substance: DILTIAZEM
     Dosage: 120 MG, QD
     Dates: start: 201806
  2. OPSUMIT [Suspect]
     Active Substance: MACITENTAN
     Indication: PULMONARY ARTERIAL HYPERTENSION
     Dosage: 10 MG, QD
     Route: 048
     Dates: start: 20180830
  3. ALPRAZOLAM. [Concomitant]
     Active Substance: ALPRAZOLAM
     Dosage: 0.5 MG, AT BEDTIME
     Dates: start: 201809
  4. ELIQUIS [Concomitant]
     Active Substance: APIXABAN
     Dosage: 5 MG, BID
  5. FISH OIL [Concomitant]
     Active Substance: FISH OIL
     Dosage: UNK, QD
  6. ESTRADIOL. [Concomitant]
     Active Substance: ESTRADIOL
     Dosage: 1 MG, QD
  7. CALCIUM [Concomitant]
     Active Substance: CALCIUM
     Dosage: UNK, QD
  8. OXYGEN. [Concomitant]
     Active Substance: OXYGEN
  9. TIKOSYN [Concomitant]
     Active Substance: DOFETILIDE
     Dosage: 250 MG, BID
     Dates: start: 2014
  10. LEVOTHYROXINE. [Concomitant]
     Active Substance: LEVOTHYROXINE
     Dosage: 100 MG, QD

REACTIONS (12)
  - Appetite disorder [Not Recovered/Not Resolved]
  - Weight fluctuation [Not Recovered/Not Resolved]
  - Productive cough [Not Recovered/Not Resolved]
  - Suffocation feeling [Recovering/Resolving]
  - Fatigue [Not Recovered/Not Resolved]
  - Abdominal distension [Not Recovered/Not Resolved]
  - Oedema peripheral [Not Recovered/Not Resolved]
  - Upper-airway cough syndrome [Recovering/Resolving]
  - Oedema [Recovering/Resolving]
  - Nasal congestion [Recovering/Resolving]
  - Dyspnoea [Not Recovered/Not Resolved]
  - Dysgeusia [Not Recovered/Not Resolved]

NARRATIVE: CASE EVENT DATE: 201809
